FAERS Safety Report 7041815-3 (Version None)
Quarter: 2010Q4

REPORT INFORMATION
  Report Type: 
  Country: None (occurrence: None)
  Receive Date: 20101013
  Receipt Date: 20101005
  Transmission Date: 20110411
  Serious: Yes (Death, Hospitalization)
  Sender: FDA-Public Use
  Company Number: PHHO2009US13636

PATIENT
  Sex: Male
  Weight: 86.1 kg

DRUGS (6)
  1. STI571/CGP57148B T35717+TAB [Suspect]
     Indication: ACUTE MYELOID LEUKAEMIA
     Dosage: 800MG DAILY
     Route: 048
     Dates: start: 20090826
  2. CLADRIBINE [Suspect]
  3. ARA-C [Suspect]
  4. NEUPOGEN [Concomitant]
  5. METHOTREXATE [Concomitant]
  6. VITAMIN K TAB [Concomitant]

REACTIONS (18)
  - BLOOD BILIRUBIN INCREASED [None]
  - BLOOD COUNT ABNORMAL [None]
  - BLOOD CREATININE INCREASED [None]
  - CARDIAC FAILURE [None]
  - CONFUSIONAL STATE [None]
  - HEPATIC ENZYME INCREASED [None]
  - HEPATIC FAILURE [None]
  - HYPOALBUMINAEMIA [None]
  - IRON OVERLOAD [None]
  - ISCHAEMIA [None]
  - JAUNDICE [None]
  - MULTI-ORGAN FAILURE [None]
  - RENAL FAILURE ACUTE [None]
  - RESPIRATORY FAILURE [None]
  - SHOCK [None]
  - TRANSAMINASES INCREASED [None]
  - TROPONIN INCREASED [None]
  - VOMITING [None]
